FAERS Safety Report 6564244-5 (Version None)
Quarter: 2010Q1

REPORT INFORMATION
  Report Type: 
  Country: None (occurrence: None)
  Receive Date: 20100201
  Receipt Date: 20100127
  Transmission Date: 20100710
  Serious: Yes (Death, Hospitalization)
  Sender: FDA-Public Use
  Company Number: US-BIOGENIDEC-2009BI041291

PATIENT
  Age: 64 Year
  Sex: Female

DRUGS (2)
  1. AVONEX [Suspect]
     Indication: MULTIPLE SCLEROSIS
     Route: 030
     Dates: start: 20091120
  2. AVONEX [Suspect]
     Route: 030
     Dates: start: 19990601, end: 20081201

REACTIONS (3)
  - EXTREMITY NECROSIS [None]
  - PULMONARY EMBOLISM [None]
  - SEPSIS [None]
